FAERS Safety Report 7478177-3 (Version None)
Quarter: 2011Q2

REPORT INFORMATION
  Report Type: 
  Country: None (occurrence: None)
  Receive Date: 20110513
  Receipt Date: 20110505
  Transmission Date: 20111010
  Serious: Yes (Hospitalization)
  Sender: FDA-Public Use
  Company Number: US-ELI_LILLY_AND_COMPANY-US201012003619

PATIENT
  Sex: Male
  Weight: 71.2 kg

DRUGS (15)
  1. FUROSEMIDE [Concomitant]
     Dosage: 40 MG, DAILY (1/D)
  2. AMLODIPINE BESYLATE [Concomitant]
     Dosage: 10 MG, DAILY (1/D)
  3. NEXIUM [Concomitant]
     Dosage: 40 MG, DAILY (1/D)
  4. CARBOPLATIN [Suspect]
     Indication: NON-SMALL CELL LUNG CANCER
     Dosage: 497 MG, UNK
     Dates: start: 20100917, end: 20101112
  5. PLAVIX [Concomitant]
     Dosage: 75 MG, DAILY (1/D)
  6. ATENOLOL [Concomitant]
     Dosage: 50 MG, DAILY (1/D)
  7. DIGOXIN [Concomitant]
     Dosage: 125 U, DAILY (1/D)
  8. ADVAIR DISKUS 100/50 [Concomitant]
     Dosage: 1 D/F, DAILY (1/D)
     Route: 055
  9. SIMVASTATIN [Concomitant]
     Dosage: 40 MG, DAILY (1/D)
  10. ERBITUX [Suspect]
     Indication: NON-SMALL CELL LUNG CANCER
     Dosage: 468 MG, UNK
     Dates: start: 20100917, end: 20101112
  11. GEMCITABINE HYDROCHLORIDE [Suspect]
     Indication: NON-SMALL CELL LUNG CANCER
     Dosage: 1400 MG, UNK
     Dates: start: 20100917, end: 20101112
  12. LIZINOPRIL [Concomitant]
     Dosage: 20 MG, DAILY (1/D)
  13. AMIODARONE HCL [Concomitant]
     Dosage: 200 MG, DAILY (1/D)
  14. TAMSULOSIN HCL [Concomitant]
     Dosage: 0.4 MG, DAILY (1/D)
  15. SYMBICORT [Concomitant]
     Dosage: 180 MG, OTHER
     Route: 055

REACTIONS (4)
  - CHEST PAIN [None]
  - ACUTE MYOCARDIAL INFARCTION [None]
  - PARAESTHESIA [None]
  - DYSPNOEA [None]
